FAERS Safety Report 7683163-4 (Version None)
Quarter: 2011Q3

REPORT INFORMATION
  Report Type: 
  Country: None (occurrence: None)
  Receive Date: 20110815
  Receipt Date: 20110808
  Transmission Date: 20111222
  Serious: Yes (Hospitalization)
  Sender: FDA-Public Use
  Company Number: US-ABBOTT-11P-163-0845503-00

PATIENT
  Sex: Female
  Weight: 56.75 kg

DRUGS (4)
  1. HUMIRA [Suspect]
     Indication: RHEUMATOID ARTHRITIS
     Dates: start: 20100101, end: 20101113
  2. SYNTHROID [Concomitant]
     Indication: HYPOTHYROIDISM
  3. PREMARIN [Concomitant]
     Indication: BLOOD OESTROGEN
  4. HUMIRA [Suspect]
     Dates: start: 20110701

REACTIONS (5)
  - DIZZINESS [None]
  - THROMBOCYTOPENIC PURPURA [None]
  - RENAL FAILURE [None]
  - MENTAL IMPAIRMENT [None]
  - FATIGUE [None]
